FAERS Safety Report 21299018 (Version 1)
Quarter: 2022Q3

REPORT INFORMATION
  Report Type: Spontaneous
  Country: US (occurrence: None)
  Receive Date: 20220906
  Receipt Date: 20220906
  Transmission Date: 20221027
  Serious: No
  Sender: FDA-Public Use
  Company Number: None

PATIENT
  Sex: Male
  Weight: 56.88 kg

DRUGS (4)
  1. FLUOROURACIL [Suspect]
     Active Substance: FLUOROURACIL
     Dates: end: 20220721
  2. CAMPTOSAR [Suspect]
     Active Substance: IRINOTECAN HYDROCHLORIDE
     Dates: end: 20220721
  3. LEUCOVORIN CALCIUM [Suspect]
     Active Substance: LEUCOVORIN CALCIUM
     Dates: end: 20220721
  4. ELOXATIN [Suspect]
     Active Substance: OXALIPLATIN
     Dates: end: 20220721

REACTIONS (16)
  - Back pain [None]
  - Abdominal pain lower [None]
  - Pyrexia [None]
  - Acute kidney injury [None]
  - Hypovolaemia [None]
  - Generalised oedema [None]
  - Decreased appetite [None]
  - Nausea [None]
  - Sepsis [None]
  - Hypoxia [None]
  - Pneumonia [None]
  - Confusional state [None]
  - Leukocytosis [None]
  - Thrombocytopenia [None]
  - Atelectasis [None]
  - Anaemia [None]

NARRATIVE: CASE EVENT DATE: 20220824
